FAERS Safety Report 23958132 (Version 1)
Quarter: 2024Q2

REPORT INFORMATION
  Report Type: Report from Study
  Country: ES (occurrence: ES)
  Receive Date: 20240610
  Receipt Date: 20240610
  Transmission Date: 20240716
  Serious: Yes (Other)
  Sender: FDA-Public Use
  Company Number: ES-TEVA-VS-3207700

PATIENT
  Age: 58 Year
  Sex: Male

DRUGS (8)
  1. TERIPARATIDE [Suspect]
     Active Substance: TERIPARATIDE
     Indication: Osteoporosis
     Dosage: FORM STRENGTH: 20 MCG/80 ML
     Route: 065
     Dates: start: 20240528
  2. MICALDEOS [Concomitant]
     Indication: Osteoporosis
     Dosage: CONTINUED
     Dates: start: 20240528
  3. METHYLPREDNISOLONE [Concomitant]
     Active Substance: METHYLPREDNISOLONE
     Indication: Respiratory disorder
     Dosage: DOSAGE: ? PER DAY; START DATE: LONG TIME AGO; END DATE: CONTINUED
  4. AMOXICILLIN [Concomitant]
     Active Substance: AMOXICILLIN
     Indication: Respiratory disorder prophylaxis
     Dosage: DOSAGE: 0-1-0-1; START DATE: LONG TIME AGO; END DATE: CONTINUED
  5. DEXKETOPROFEN\TRAMADOL [Concomitant]
     Active Substance: DEXKETOPROFEN\TRAMADOL
     Indication: Pain
     Dosage: TIME INTERVAL: AS NECESSARY: START DATE: LONG TIME AGO; END DATE: CONTINUED
  6. CAPTOR [Concomitant]
     Indication: Pain
     Dosage: TIME INTERVAL: 0.33333333 DAYS: DOSAGE: 1-1-1; START DATE: LONG TIME AGO; END DATE: CONTINUED
  7. OLMESARTAN [Concomitant]
     Active Substance: OLMESARTAN
     Indication: Hypertension
     Dosage: DOSAGE: 1/24H; START DATE: LONG TIME AGO; END DATE: CONTINUED
  8. XOLAIR [Concomitant]
     Active Substance: OMALIZUMAB
     Indication: Asthma
     Dosage: DOSAGE: 4 C/15 DAYS; START DATE: LONG TIME AGO; END DATE: CONTINUED

REACTIONS (1)
  - Abdominal pain lower [Not Recovered/Not Resolved]

NARRATIVE: CASE EVENT DATE: 20240528
